FAERS Safety Report 10470366 (Version 2)
Quarter: 2014Q4

REPORT INFORMATION
  Report Type: Spontaneous
  Country: US (occurrence: US)
  Receive Date: 20140923
  Receipt Date: 20141024
  Transmission Date: 20150528
  Serious: Yes (Other)
  Sender: FDA-Public Use
  Company Number: US-BAYER-2014-139274

PATIENT
  Age: 26 Year
  Sex: Female

DRUGS (1)
  1. MIRENA [Suspect]
     Active Substance: LEVONORGESTREL
     Indication: CONTRACEPTION
     Dosage: 20 MCG/24HR, CONT
     Dates: start: 20131024

REACTIONS (7)
  - Back pain [None]
  - Genital haemorrhage [None]
  - Device breakage [Not Recovered/Not Resolved]
  - Haemorrhagic ovarian cyst [None]
  - Device dislocation [Not Recovered/Not Resolved]
  - Dysuria [None]
  - Pelvic pain [None]

NARRATIVE: CASE EVENT DATE: 2013
